FAERS Safety Report 6133684-0 (Version None)
Quarter: 2009Q1

REPORT INFORMATION
  Report Type: 
  Country: None (occurrence: None)
  Receive Date: 20090326
  Receipt Date: 20090319
  Transmission Date: 20090719
  Serious: Yes (Disabling, Other)
  Sender: FDA-Public Use
  Company Number: B0562684A

PATIENT
  Age: 44 Year
  Sex: Male

DRUGS (6)
  1. LAMICTAL [Suspect]
     Indication: EPILEPSY
     Dosage: 25MG PER DAY
     Route: 048
     Dates: start: 20090211, end: 20090222
  2. LAMICTAL [Suspect]
     Dosage: 25MG PER DAY
     Route: 048
     Dates: start: 20090223, end: 20090224
  3. DEPAKENE [Suspect]
     Indication: EPILEPSY
     Route: 048
  4. PHENOBARBITAL TAB [Concomitant]
     Indication: EPILEPSY
     Dosage: 30MG PER DAY
     Route: 048
  5. RIVOTRIL [Concomitant]
     Indication: EPILEPSY
     Dosage: 1MG PER DAY
     Route: 048
  6. UNKNOWN DRUG [Concomitant]
     Indication: WHITE BLOOD CELL COUNT DECREASED
     Dosage: 20MG PER DAY
     Route: 048

REACTIONS (6)
  - GENERALISED ERYTHEMA [None]
  - MUCOSAL HYPERAEMIA [None]
  - OEDEMA [None]
  - OEDEMA MUCOSAL [None]
  - PYREXIA [None]
  - STEVENS-JOHNSON SYNDROME [None]
